FAERS Safety Report 13394738 (Version 1)
Quarter: 2017Q2

REPORT INFORMATION
  Report Type: Spontaneous
  Country: GB (occurrence: GB)
  Receive Date: 20170403
  Receipt Date: 20170403
  Transmission Date: 20170830
  Serious: Yes (Hospitalization, Other)
  Sender: FDA-Public Use
  Company Number: GB-009507513-1704GBR000060

PATIENT
  Age: 73 Year
  Sex: Male
  Weight: 76 kg

DRUGS (15)
  1. PENTASA [Concomitant]
     Active Substance: MESALAMINE
  2. OMEPRAZOLE. [Concomitant]
     Active Substance: OMEPRAZOLE
  3. OXYCODONE [Concomitant]
     Active Substance: OXYCODONE
  4. PHYLLOCONTIN [Concomitant]
     Active Substance: AMINOPHYLLINE
  5. PRAVASTATIN. [Concomitant]
     Active Substance: PRAVASTATIN
  6. GABAPENTIN. [Concomitant]
     Active Substance: GABAPENTIN
  7. SOLIFENACIN SUCCINATE. [Concomitant]
     Active Substance: SOLIFENACIN SUCCINATE
  8. DAPTOMYCIN. [Suspect]
     Active Substance: DAPTOMYCIN
     Indication: DEVICE RELATED INFECTION
     Dosage: 800 MG, UNKNOWN
     Route: 042
     Dates: start: 20170220, end: 20170309
  9. CIPROFLOXACIN. [Suspect]
     Active Substance: CIPROFLOXACIN
     Indication: DEVICE RELATED INFECTION
     Dosage: 500 MG, UNKNOWN
     Route: 048
     Dates: start: 20170208, end: 20170309
  10. NYSTATIN. [Concomitant]
     Active Substance: NYSTATIN
  11. ENOXAPARIN SODIUM. [Concomitant]
     Active Substance: ENOXAPARIN SODIUM
  12. VANCOMYCIN [Concomitant]
     Active Substance: VANCOMYCIN
  13. TAMSULOSIN HYDROCHLORIDE. [Concomitant]
     Active Substance: TAMSULOSIN HYDROCHLORIDE
  14. NAPROXEN. [Concomitant]
     Active Substance: NAPROXEN
  15. ACETAMINOPHEN. [Concomitant]
     Active Substance: ACETAMINOPHEN

REACTIONS (3)
  - Rash generalised [Not Recovered/Not Resolved]
  - Pyrexia [Recovered/Resolved]
  - Malaise [Recovering/Resolving]

NARRATIVE: CASE EVENT DATE: 20170309
